FAERS Safety Report 24029531 (Version 1)
Quarter: 2024Q2

REPORT INFORMATION
  Report Type: Spontaneous
  Country: CA (occurrence: CA)
  Receive Date: 20240628
  Receipt Date: 20240628
  Transmission Date: 20240716
  Serious: Yes (Hospitalization, Other)
  Sender: FDA-Public Use
  Company Number: CA-SK LIFE SCIENCE, INC.-SKPVG-2024-001416

PATIENT

DRUGS (5)
  1. XCOPRI [Suspect]
     Active Substance: CENOBAMATE
     Indication: Product used for unknown indication
     Dosage: 100 MILLIGRAM, DAILY
     Route: 065
  2. XCOPRI [Suspect]
     Active Substance: CENOBAMATE
     Dosage: 150 MILLIGRAM, DAILY
     Route: 065
  3. XCOPRI [Suspect]
     Active Substance: CENOBAMATE
     Dosage: 100 MILLIGRAM, DAILY
     Route: 065
  4. CLOBAZAM [Suspect]
     Active Substance: CLOBAZAM
     Indication: Product used for unknown indication
     Dosage: 40 MILLIGRAM
     Route: 065
  5. CLOBAZAM [Suspect]
     Active Substance: CLOBAZAM
     Dosage: 5 MILLIGRAM
     Route: 065

REACTIONS (4)
  - Coma [Unknown]
  - Pneumonia [Unknown]
  - Somnolence [Unknown]
  - Seizure [Unknown]
